FAERS Safety Report 13995953 (Version 1)
Quarter: 2017Q3

REPORT INFORMATION
  Report Type: Spontaneous
  Country: US (occurrence: US)
  Receive Date: 20170921
  Receipt Date: 20170921
  Transmission Date: 20171128
  Serious: No
  Sender: FDA-Public Use
  Company Number: US-009507513-1709USA008843

PATIENT
  Sex: Female

DRUGS (1)
  1. NEXPLANON [Suspect]
     Active Substance: ETONOGESTREL
     Dosage: 1 DF, UNK
     Route: 059

REACTIONS (5)
  - Adverse event [Unknown]
  - Complication of device removal [Not Recovered/Not Resolved]
  - Headache [Unknown]
  - Complication of device insertion [Not Recovered/Not Resolved]
  - Acne [Unknown]
